FAERS Safety Report 4394962-9 (Version None)
Quarter: 2004Q3

REPORT INFORMATION
  Report Type: 
  Country: None (occurrence: None)
  Receive Date: 20040706
  Receipt Date: 20040622
  Transmission Date: 20050211
  Serious: Yes (Hospitalization, Other)
  Sender: FDA-Public Use
  Company Number: 2004041010

PATIENT
  Age: 34 Year
  Sex: Male

DRUGS (1)
  1. ZYRTEC [Suspect]
     Indication: HYPERSENSITIVITY

REACTIONS (4)
  - RED BLOOD CELLS SEMEN [None]
  - RENAL COLIC [None]
  - URINARY BLADDER HAEMORRHAGE [None]
  - URINARY RETENTION [None]
